FAERS Safety Report 21858848 (Version 1)
Quarter: 2023Q1

REPORT INFORMATION
  Report Type: Other
  Country: GB (occurrence: GB)
  Receive Date: 20230113
  Receipt Date: 20230113
  Transmission Date: 20230417
  Serious: Yes (Life-Threatening, Other)
  Sender: FDA-Public Use
  Company Number: GB-MHRA-MED-202301041344286140-KYPRJ

PATIENT

DRUGS (1)
  1. GABAPENTIN [Suspect]
     Active Substance: GABAPENTIN
     Indication: Restless legs syndrome
     Dosage: 1 DOSAGE FORM, TID (UNSURE OF MG, WAS SEVERAL YEARS AGO. ONLY TOOK 1 TABLET)
     Route: 065

REACTIONS (4)
  - Haematemesis [Recovered/Resolved]
  - Loss of consciousness [Unknown]
  - Anaphylactic reaction [Unknown]
  - Aggression [Unknown]
